FAERS Safety Report 7901810-6 (Version None)
Quarter: 2011Q4

REPORT INFORMATION
  Report Type: 
  Country: None (occurrence: None)
  Receive Date: 20111104
  Receipt Date: 20111022
  Transmission Date: 20120403
  Serious: Yes (Hospitalization)
  Sender: FDA-Public Use
  Company Number: 2011AP002462

PATIENT
  Age: 56 Year
  Sex: Female

DRUGS (5)
  1. CARBAMAZEPINE [Suspect]
  2. ARIPIPRAZOLE [Suspect]
     Indication: PSYCHOTIC DISORDER
     Dosage: 30 MG;UNKNOWN;QD
  3. VALPROIC ACID [Suspect]
     Indication: PSYCHOTIC DISORDER
  4. FLUPENTIXOL (FLUPENTIXOL) [Suspect]
     Indication: PSYCHOTIC DISORDER
  5. OLANZAPINE [Suspect]
     Indication: PSYCHOTIC DISORDER

REACTIONS (3)
  - MENTAL STATUS CHANGES [None]
  - HYPONATRAEMIA [None]
  - WEIGHT INCREASED [None]
